FAERS Safety Report 8811319 (Version 1)
Quarter: 2012Q4

REPORT INFORMATION
  Report Type: 
  Country: US (occurrence: US)
  Receive Date: 20120927
  Receipt Date: 20120927
  Transmission Date: 20130627
  Serious: Yes (Other)
  Sender: FDA-Public Use
  Company Number: US-ELI_LILLY_AND_COMPANY-US201209004239

PATIENT
  Age: 75 Year
  Sex: Female

DRUGS (1)
  1. CYMBALTA [Suspect]
     Indication: DEPRESSION
     Dosage: 60 mg, qd
     Dates: start: 2011

REACTIONS (3)
  - Obesity surgery [Unknown]
  - Stomatitis [Recovered/Resolved]
  - Vaginal disorder [Not Recovered/Not Resolved]
